FAERS Safety Report 23772754 (Version 2)
Quarter: 2024Q2

REPORT INFORMATION
  Report Type: Spontaneous
  Country: FR (occurrence: FR)
  Receive Date: 20240423
  Receipt Date: 20240627
  Transmission Date: 20240716
  Serious: No
  Sender: FDA-Public Use
  Company Number: FR-ROCHE-3534314

PATIENT
  Sex: Female

DRUGS (1)
  1. COLUMVI [Suspect]
     Active Substance: GLOFITAMAB-GXBM
     Indication: Diffuse large B-cell lymphoma
     Route: 065

REACTIONS (6)
  - Erythema [Recovered/Resolved]
  - Pruritus [Unknown]
  - Swollen tongue [Recovered/Resolved]
  - Arthralgia [Recovered/Resolved]
  - Inflammatory marker increased [Recovered/Resolved]
  - Swelling [Unknown]
